FAERS Safety Report 16313896 (Version 1)
Quarter: 2019Q2

REPORT INFORMATION
  Report Type: Spontaneous
  Country: US (occurrence: US)
  Receive Date: 20190514
  Receipt Date: 20190514
  Transmission Date: 20190711
  Serious: No
  Sender: FDA-Public Use
  Company Number: None

PATIENT
  Age: 67 Year
  Sex: Female
  Weight: 49.5 kg

DRUGS (8)
  1. FISH OIL [Concomitant]
     Active Substance: FISH OIL
  2. FORTEO [Suspect]
     Active Substance: TERIPARATIDE
     Indication: OSTEOPOROSIS
     Dosage: ?          OTHER STRENGTH:20 MCG;?
     Route: 058
     Dates: start: 20190502, end: 20190504
  3. LOVASTATIN. [Concomitant]
     Active Substance: LOVASTATIN
  4. MULTIVITATIMIN [Concomitant]
  5. UBIQUINOL [Concomitant]
     Active Substance: UBIQUINOL
  6. VITAMIN D [Concomitant]
     Active Substance: VITAMIN D NOS
  7. CALCIUM [Concomitant]
     Active Substance: CALCIUM
  8. PTU [Concomitant]
     Active Substance: PROPYLTHIOURACIL

REACTIONS (4)
  - Dyschezia [None]
  - Headache [None]
  - Abdominal pain upper [None]
  - Constipation [None]

NARRATIVE: CASE EVENT DATE: 20190502
